FAERS Safety Report 15680409 (Version 1)
Quarter: 2018Q4

REPORT INFORMATION
  Report Type: Spontaneous
  Country: US (occurrence: US)
  Receive Date: 20181202
  Receipt Date: 20181202
  Transmission Date: 20190205
  Serious: No
  Sender: FDA-Public Use
  Company Number: None

PATIENT
  Age: 49 Year
  Sex: Female
  Weight: 72 kg

DRUGS (1)
  1. HYDROXYCHLOROQUINE 200 MG TAB [Suspect]
     Active Substance: HYDROXYCHLOROQUINE
     Indication: SYSTEMIC LUPUS ERYTHEMATOSUS
     Dosage: ?          QUANTITY:1 TABLET(S);?
     Route: 048
     Dates: start: 20181007, end: 20181012

REACTIONS (6)
  - Arthralgia [None]
  - Hepatic pain [None]
  - Therapy change [None]
  - Burning sensation [None]
  - Abdominal pain upper [None]
  - Manufacturing materials issue [None]

NARRATIVE: CASE EVENT DATE: 20181009
